FAERS Safety Report 5751524-6 (Version None)
Quarter: 2008Q2

REPORT INFORMATION
  Report Type: 
  Country: None (occurrence: None)
  Receive Date: 20080527
  Receipt Date: 20080515
  Transmission Date: 20081010
  Serious: Yes (Other)
  Sender: FDA-Public Use
  Company Number: CHPA2008US08333

PATIENT
  Age: 52 Year
  Sex: Female

DRUGS (1)
  1. EX-LAX MAX         (SENNA GLYCOSIDES ) [Suspect]
     Indication: CONSTIPATION
     Dosage: 25 MG, QD, ORAL;  50 MG, QD, ORAL
     Route: 048

REACTIONS (2)
  - CONSTIPATION [None]
  - INTENTIONAL DRUG MISUSE [None]
